FAERS Safety Report 20611772 (Version 1)
Quarter: 2022Q1

REPORT INFORMATION
  Report Type: Spontaneous
  Country: US (occurrence: None)
  Receive Date: 20220318
  Receipt Date: 20220318
  Transmission Date: 20220423
  Serious: Yes (Death, Life-Threatening, Hospitalization)
  Sender: FDA-Public Use
  Company Number: None

PATIENT
  Age: 75 Year
  Sex: Male

DRUGS (1)
  1. REVLIMID [Suspect]
     Active Substance: LENALIDOMIDE
     Indication: Plasma cell myeloma
     Dosage: FREQUENCY : DAILY;?
     Route: 048
     Dates: start: 20220114, end: 20220304

REACTIONS (5)
  - Cardiac arrest [None]
  - Hypoglycaemia [None]
  - Confusional state [None]
  - Bradycardia [None]
  - Pulseless electrical activity [None]

NARRATIVE: CASE EVENT DATE: 20220304
